FAERS Safety Report 7625353-2 (Version None)
Quarter: 2011Q3

REPORT INFORMATION
  Report Type: 
  Country: None (occurrence: None)
  Receive Date: 20110721
  Receipt Date: 20110718
  Transmission Date: 20111222
  Serious: Yes (Other)
  Sender: FDA-Public Use
  Company Number: US-PFIZER INC-2011163155

PATIENT
  Sex: Female
  Weight: 63.492 kg

DRUGS (3)
  1. LYRICA [Suspect]
     Indication: TRIGEMINAL NEURALGIA
     Dosage: 50 MG, DAILY
     Route: 048
     Dates: start: 20110101
  2. EPITOL [Concomitant]
     Indication: TRIGEMINAL NEURALGIA
     Dosage: 400 MG, DAILY
  3. DICLOFENAC [Concomitant]
     Indication: TRIGEMINAL NEURALGIA
     Dosage: 150 MG, DAILY

REACTIONS (1)
  - EYE SWELLING [None]
